FAERS Safety Report 7014824-8 (Version None)
Quarter: 2010Q3

REPORT INFORMATION
  Report Type: 
  Country: None (occurrence: None)
  Receive Date: 20100927
  Receipt Date: 20100915
  Transmission Date: 20110219
  Serious: Yes (Death, Hospitalization)
  Sender: FDA-Public Use
  Company Number: CA-GENZYME-POMP-1000723

PATIENT
  Sex: Female

DRUGS (4)
  1. MYOZYME [Suspect]
     Indication: GLYCOGEN STORAGE DISEASE TYPE II
     Dosage: 20 MG/KG, Q2W
     Route: 042
     Dates: start: 20081218, end: 20090522
  2. RANITIDINE [Concomitant]
     Indication: GASTROOESOPHAGEAL REFLUX DISEASE
     Dosage: 30 MG, BID
     Route: 065
     Dates: start: 20090309
  3. DIGOXIN [Concomitant]
     Indication: CARDIOMYOPATHY
     Dosage: 35 MG, BID
     Route: 065
     Dates: start: 20090120
  4. ONDANSETRON [Concomitant]
     Indication: VOMITING
     Dosage: 1 MG, TID
     Route: 042
     Dates: start: 20090522, end: 20090529

REACTIONS (4)
  - BRADYCARDIA [None]
  - CARDIAC ARREST [None]
  - RESPIRATORY DISTRESS [None]
  - RESPIRATORY TRACT INFECTION [None]
